FAERS Safety Report 26095989 (Version 1)
Quarter: 2025Q4

REPORT INFORMATION
  Report Type: Spontaneous
  Country: US (occurrence: US)
  Receive Date: 20251127
  Receipt Date: 20251127
  Transmission Date: 20260117
  Serious: No
  Sender: ELI LILLY AND COMPANY
  Company Number: US-ELI_LILLY_AND_COMPANY-US202511024227

PATIENT
  Age: 49 Year
  Sex: Male
  Weight: 152.4 kg

DRUGS (8)
  1. MOUNJARO [Suspect]
     Active Substance: TIRZEPATIDE
     Indication: Product used for unknown indication
     Dosage: UNK UNK, UNKNOWN
     Route: 065
  2. RECORLEV [Suspect]
     Active Substance: LEVOKETOCONAZOLE
     Indication: Cushing^s syndrome
     Dosage: 150 MG, BID
     Route: 048
     Dates: start: 20250318, end: 20250318
  3. RECORLEV [Suspect]
     Active Substance: LEVOKETOCONAZOLE
     Dosage: 150 MG, BID
     Route: 048
     Dates: start: 202503, end: 202503
  4. RECORLEV [Suspect]
     Active Substance: LEVOKETOCONAZOLE
     Dosage: 150 MG, DAILY
     Route: 048
     Dates: start: 202503, end: 2025
  5. RECORLEV [Suspect]
     Active Substance: LEVOKETOCONAZOLE
     Dosage: 150 MG, BID
     Route: 048
     Dates: start: 2025, end: 20251015
  6. RECORLEV [Suspect]
     Active Substance: LEVOKETOCONAZOLE
     Dosage: 150 MG, DAILY (MORNING)
     Route: 048
     Dates: start: 20251016
  7. RECORLEV [Suspect]
     Active Substance: LEVOKETOCONAZOLE
     Dosage: 300 MG, DAILY
     Route: 048
     Dates: start: 20251016
  8. BARIUM SULFATE [Concomitant]
     Active Substance: BARIUM SULFATE
     Indication: Fluid retention

REACTIONS (9)
  - Blood glucose increased [Not Recovered/Not Resolved]
  - Myalgia [Recovered/Resolved]
  - Arthralgia [Recovered/Resolved]
  - Hot flush [Not Recovered/Not Resolved]
  - Headache [Recovered/Resolved]
  - Illness [Not Recovered/Not Resolved]
  - Fatigue [Not Recovered/Not Resolved]
  - Nausea [Recovered/Resolved]
  - Abdominal discomfort [Recovered/Resolved]

NARRATIVE: CASE EVENT DATE: 20250101
